FAERS Safety Report 18221529 (Version 1)
Quarter: 2020Q3

REPORT INFORMATION
  Report Type: Spontaneous
  Country: US (occurrence: US)
  Receive Date: 20200831
  Receipt Date: 20200831
  Transmission Date: 20201103
  Serious: Yes (Life-Threatening, Disabling, Other)
  Sender: FDA-Public Use
  Company Number: None

PATIENT
  Age: 54 Year
  Sex: Female
  Weight: 83.7 kg

DRUGS (1)
  1. XIFAXAN [Suspect]
     Active Substance: RIFAXIMIN
     Indication: IRRITABLE BOWEL SYNDROME
     Dosage: ?          QUANTITY:1 TABLET(S);?
     Route: 048
     Dates: start: 20200801, end: 20200806

REACTIONS (6)
  - Migraine with aura [None]
  - Swollen tongue [None]
  - Fatigue [None]
  - Urticaria [None]
  - Hypersomnia [None]
  - Weight decreased [None]

NARRATIVE: CASE EVENT DATE: 20200806
